FAERS Safety Report 24591890 (Version 1)
Quarter: 2024Q4

REPORT INFORMATION
  Report Type: Spontaneous
  Country: GB (occurrence: GB)
  Receive Date: 20241108
  Receipt Date: 20241108
  Transmission Date: 20250115
  Serious: Yes (Other)
  Sender: UCB
  Company Number: GB-UCBSA-2024056987

PATIENT
  Age: 59 Year
  Sex: Male

DRUGS (2)
  1. KEPPRA [Suspect]
     Active Substance: LEVETIRACETAM
     Indication: Product used for unknown indication
     Dosage: 3500
  2. KEPPRA [Suspect]
     Active Substance: LEVETIRACETAM
     Dosage: 2000

REACTIONS (4)
  - Seizure [Unknown]
  - Anger [Unknown]
  - Drug ineffective [Unknown]
  - Overdose [Unknown]
